FAERS Safety Report 7568384-3 (Version None)
Quarter: 2011Q2

REPORT INFORMATION
  Report Type: 
  Country: None (occurrence: None)
  Receive Date: 20110623
  Receipt Date: 20110615
  Transmission Date: 20111010
  Serious: Yes (Hospitalization)
  Sender: FDA-Public Use
  Company Number: B0724296A

PATIENT
  Sex: Male

DRUGS (3)
  1. VELCADE [Suspect]
     Indication: MULTIPLE MYELOMA
     Dosage: 3.5MG PER DAY
     Route: 042
     Dates: start: 20110316, end: 20110323
  2. ALKERAN [Suspect]
     Indication: MULTIPLE MYELOMA
     Dosage: 8MG PER DAY
     Route: 048
     Dates: start: 20110316, end: 20110319
  3. PREDNISONE [Concomitant]
     Dates: start: 20110316, end: 20110319

REACTIONS (1)
  - KLEBSIELLA SEPSIS [None]
